FAERS Safety Report 7552172-8 (Version None)
Quarter: 2011Q2

REPORT INFORMATION
  Report Type: 
  Country: None (occurrence: None)
  Receive Date: 20110616
  Receipt Date: 20040225
  Transmission Date: 20111010
  Serious: Yes (Life-Threatening, Hospitalization)
  Sender: FDA-Public Use
  Company Number: PHHO2004JP01393

PATIENT
  Sex: Female
  Weight: 42 kg

DRUGS (2)
  1. DIOVAN [Suspect]
     Indication: HYPERTENSION
     Dosage: 40 MG, QD
     Route: 048
     Dates: start: 20030428, end: 20030604
  2. PENFILL N [Concomitant]
     Indication: DIABETES MELLITUS
     Dates: start: 20010316

REACTIONS (6)
  - CORONARY ARTERY STENOSIS [None]
  - BREAST DISCOMFORT [None]
  - RESPIRATORY DISTRESS [None]
  - CARDIAC FAILURE [None]
  - MYOCARDIAL INFARCTION [None]
  - ELECTROCARDIOGRAM ST SEGMENT ELEVATION [None]
